FAERS Safety Report 12640684 (Version 1)
Quarter: 2016Q3

REPORT INFORMATION
  Report Type: Spontaneous
  Country: US (occurrence: US)
  Receive Date: 20160810
  Receipt Date: 20160810
  Transmission Date: 20161109
  Serious: Yes (Other)
  Sender: FDA-Public Use
  Company Number: US-BAYER-2016-149840

PATIENT
  Age: 41 Year
  Sex: Female

DRUGS (1)
  1. ACETYLSALICYLIC ACID (} 100 MG) [Suspect]
     Active Substance: ASPIRIN
     Dosage: 650 MG, BID

REACTIONS (3)
  - Arteriospasm coronary [None]
  - Eosinophilia [None]
  - Aspirin-exacerbated respiratory disease [None]
